FAERS Safety Report 5099476-9 (Version None)
Quarter: 2006Q3

REPORT INFORMATION
  Report Type: 
  Country: None (occurrence: None)
  Receive Date: 20060906
  Receipt Date: 20060824
  Transmission Date: 20061208
  Serious: Yes (Other)
  Sender: FDA-Public Use
  Company Number: 2006103361

PATIENT
  Age: 59 Year
  Sex: Male
  Weight: 83.0083 kg

DRUGS (4)
  1. LIPITOR [Suspect]
     Indication: LOW DENSITY LIPOPROTEIN INCREASED
  2. SEROQUEL [Suspect]
     Indication: SLEEP DISORDER
     Dates: start: 20030101, end: 20040101
  3. ANTIDEPRESSANTS (ANTIDEPRESSANTS) [Concomitant]
  4. PREVACID [Concomitant]

REACTIONS (5)
  - DIABETES MELLITUS NON-INSULIN-DEPENDENT [None]
  - DIABETIC NEUROPATHY [None]
  - DRUG EFFECT DECREASED [None]
  - HYPERTENSION [None]
  - SLEEP DISORDER [None]
